FAERS Safety Report 10186462 (Version 1)
Quarter: 2014Q2

REPORT INFORMATION
  Report Type: Spontaneous
  Country: US (occurrence: US)
  Receive Date: 20140521
  Receipt Date: 20140521
  Transmission Date: 20141212
  Serious: No
  Sender: FDA-Public Use
  Company Number: US-ASTRAZENECA-2013SE82525

PATIENT
  Sex: Female

DRUGS (1)
  1. PULMICORT FLEXHALER [Suspect]
     Indication: ASTHMA
     Route: 055

REACTIONS (7)
  - Asthma [Unknown]
  - Malaise [Unknown]
  - Pulmonary congestion [Unknown]
  - Cough [Unknown]
  - Depressed mood [Recovered/Resolved]
  - Psychomotor hyperactivity [Recovered/Resolved]
  - Therapy cessation [Unknown]
